FAERS Safety Report 8493380-1 (Version None)
Quarter: 2012Q2

REPORT INFORMATION
  Report Type: 
  Country: None (occurrence: None)
  Receive Date: 20120628
  Receipt Date: 20120619
  Transmission Date: 20120825
  Serious: Yes (Hospitalization)
  Sender: FDA-Public Use
  Company Number: 2012-ES-0009

PATIENT
  Age: 45 Year
  Sex: Male

DRUGS (7)
  1. FENTANYL (OTHER BRAND) FENTANYL (OTHER BRAND) [Concomitant]
  2. NONSTEROIDAL ANTI-INFLAMMATORY DRUGS NOS [Concomitant]
  3. VENLAFAXINE HCL [Concomitant]
  4. STEROIDS NOS [Concomitant]
  5. OXYCODONE HCL [Concomitant]
  6. FENTANYL CITRATE [Suspect]
     Indication: BREAKTHROUGH PAIN
     Dosage: APPROX 8 X DAY
  7. GABAPENTIN [Concomitant]

REACTIONS (6)
  - DRUG ABUSE [None]
  - ABNORMAL BEHAVIOUR [None]
  - TREATMENT NONCOMPLIANCE [None]
  - INTENTIONAL DRUG MISUSE [None]
  - DRUG DEPENDENCE [None]
  - SELF-MEDICATION [None]
